FAERS Safety Report 17914440 (Version 1)
Quarter: 2020Q2

REPORT INFORMATION
  Report Type: Report from Study
  Country: ES (occurrence: ES)
  Receive Date: 20200619
  Receipt Date: 20200619
  Transmission Date: 20200714
  Serious: Yes (Life-Threatening)
  Sender: FDA-Public Use
  Company Number: ES-TEVA-2020-ES-1788339

PATIENT
  Age: 76 Year
  Sex: Male

DRUGS (5)
  1. CEFTRIAXONA (501A) [Suspect]
     Active Substance: CEFTRIAXONE
     Indication: COVID-19
     Dosage: 1000 MG
     Route: 042
     Dates: start: 20200317, end: 20200324
  2. KALETRA [Concomitant]
     Active Substance: LOPINAVIR\RITONAVIR
     Indication: COVID-19
     Dosage: 2 DOSAGE FORMS
     Route: 048
     Dates: start: 20200317, end: 20200317
  3. REZOLSTA 800 MG / 150 MG COMPRIMIDOS RECUBIERTOS CON PELICULA 30 COMPR [Suspect]
     Active Substance: COBICISTAT\DARUNAVIR ETHANOLATE
     Indication: COVID-19
     Dosage: 1 DOSAGE FORMS
     Route: 048
     Dates: start: 20200317, end: 20200324
  4. AZITROMICINA (7019A) [Suspect]
     Active Substance: AZITHROMYCIN
     Indication: COVID-19
     Dosage: 500 MG
     Route: 048
     Dates: start: 20200317, end: 20200322
  5. HIDROXICLOROQUINA SULFATO (2143SU) [Suspect]
     Active Substance: HYDROXYCHLOROQUINE SULFATE
     Indication: COVID-19
     Dosage: 400 MG
     Route: 048
     Dates: start: 20200317, end: 20200324

REACTIONS (1)
  - Atrial fibrillation [Recovered/Resolved]

NARRATIVE: CASE EVENT DATE: 20200324
